FAERS Safety Report 5379320-2 (Version None)
Quarter: 2007Q3

REPORT INFORMATION
  Report Type: 
  Country: None (occurrence: None)
  Receive Date: 20070705
  Receipt Date: 20070625
  Transmission Date: 20080115
  Serious: Yes (Hospitalization)
  Sender: FDA-Public Use
  Company Number: HK-PFIZER INC-2007039131

PATIENT
  Sex: Male
  Weight: 57.9 kg

DRUGS (1)
  1. SU-011,248 [Suspect]
     Indication: GASTRIC CANCER
     Route: 048

REACTIONS (2)
  - ABDOMINAL PAIN [None]
  - STENT OCCLUSION [None]
